FAERS Safety Report 5077912-1 (Version None)
Quarter: 2006Q3

REPORT INFORMATION
  Report Type: 
  Country: None (occurrence: None)
  Receive Date: 20060808
  Receipt Date: 20060724
  Transmission Date: 20061208
  Serious: Yes (Death)
  Sender: FDA-Public Use
  Company Number: S06-UKI-03101-01

PATIENT
  Age: 46 Year
  Sex: Female

DRUGS (5)
  1. CITALOPRAM HYDROBROMIDE [Suspect]
     Indication: DEPRESSION
     Dosage: 20 MG QD
     Dates: start: 20031001
  2. ABILIFY [Suspect]
     Indication: PSYCHOTIC DISORDER
     Dosage: 30 MG QD
     Dates: start: 20050201
  3. KEMADRIN [Suspect]
     Dosage: 10 MG QD
     Dates: start: 20031001
  4. KEPPRA [Suspect]
     Indication: EPILEPSY
     Dosage: 2000 MG QD
     Dates: start: 20030501
  5. TEGRETOL [Suspect]
     Indication: EPILEPSY
     Dosage: 600 MG QD
     Dates: start: 19920101

REACTIONS (1)
  - DEATH [None]
